FAERS Safety Report 5689592-2 (Version None)
Quarter: 2008Q1

REPORT INFORMATION
  Report Type: 
  Country: None (occurrence: None)
  Receive Date: 20080331
  Receipt Date: 20080305
  Transmission Date: 20080703
  Serious: No
  Sender: FDA-Public Use
  Company Number: US-BOEHRINGER INGELHEIM GMBH, GERMANY-2007-BP-25260BP

PATIENT
  Sex: Female

DRUGS (23)
  1. MIRAPEX [Suspect]
     Indication: RESTLESS LEGS SYNDROME
     Route: 048
     Dates: start: 20050101
  2. CLORAZEPATE [Concomitant]
     Indication: ANXIETY
  3. ACETAMINOPHEN AND HYDROCODONE BITARTRATE [Concomitant]
     Indication: MUSCULOSKELETAL PAIN
  4. METOCLOPRAMIDE [Concomitant]
     Route: 048
  5. OMEPRAZOLE [Concomitant]
  6. VESICARE [Concomitant]
     Indication: URINARY INCONTINENCE
     Route: 048
  7. ALBUTEROL .083% NEBULIZER SOLUTION [Concomitant]
     Indication: CHRONIC OBSTRUCTIVE PULMONARY DISEASE
     Route: 055
  8. ALBUTEROL .083% NEBULIZER SOLUTION [Concomitant]
     Indication: DYSPNOEA
  9. OMNICEF [Concomitant]
     Route: 048
  10. FUROSEMIDE [Concomitant]
     Route: 048
  11. LISINOPRIL [Concomitant]
     Route: 048
  12. NITROSTAT [Concomitant]
     Route: 060
  13. POTASSIUM CHLORIDE [Concomitant]
     Route: 048
  14. PROMETHAZINE [Concomitant]
     Indication: MIGRAINE
  15. TORADOL [Concomitant]
     Indication: MIGRAINE
  16. CARTIA XT [Concomitant]
     Route: 048
  17. CALCITRIOL [Concomitant]
  18. FOSAMAX [Concomitant]
     Route: 048
  19. SPIRIVA [Concomitant]
     Route: 055
  20. ADVAIR DISKUS 100/50 [Concomitant]
     Route: 055
  21. ALBUTEROL [Concomitant]
  22. LIPITOR [Concomitant]
     Route: 048
  23. SINGULAIR [Concomitant]
     Route: 048

REACTIONS (2)
  - RESTLESSNESS [None]
  - THERAPEUTIC RESPONSE DECREASED [None]
